FAERS Safety Report 7606748-X (Version None)
Quarter: 2011Q3

REPORT INFORMATION
  Report Type: 
  Country: None (occurrence: None)
  Receive Date: 20110713
  Receipt Date: 20110704
  Transmission Date: 20111222
  Serious: Yes (Other)
  Sender: FDA-Public Use
  Company Number: ZA-ROCHE-787626

PATIENT
  Sex: Female

DRUGS (1)
  1. ISOTRETINOIN [Suspect]
     Dosage: DOSE 50 TO 60 MG DAILY
     Route: 065

REACTIONS (1)
  - GROWTH RETARDATION [None]
